FAERS Safety Report 4487695-1 (Version None)
Quarter: 2004Q4

REPORT INFORMATION
  Report Type: 
  Country: None (occurrence: None)
  Receive Date: 20041028
  Receipt Date: 20041014
  Transmission Date: 20050328
  Serious: Yes (Other)
  Sender: FDA-Public Use
  Company Number: JP-ABBOTT-04P-087-0278288-00

PATIENT
  Age: 55 Year
  Sex: Male

DRUGS (13)
  1. KLARICID [Suspect]
     Indication: ANTI-INFECTIVE THERAPY
     Route: 048
     Dates: start: 20041007, end: 20041013
  2. LANSOPRAZOLE [Concomitant]
     Indication: UNEVALUABLE EVENT
     Route: 048
     Dates: start: 20041007, end: 20041013
  3. AMOXICILLIN [Concomitant]
     Indication: UNEVALUABLE EVENT
     Route: 048
     Dates: start: 20041007, end: 20041013
  4. VALPROATE SODIUM [Concomitant]
     Indication: DRUG USE FOR UNKNOWN INDICATION
     Route: 048
  5. VALPROATE SODIUM [Concomitant]
     Route: 048
  6. RISPERIDONE [Concomitant]
     Indication: DRUG USE FOR UNKNOWN INDICATION
     Route: 048
  7. BIPERIDEN HYDROCHLORIDE TAB [Concomitant]
     Indication: DRUG USE FOR UNKNOWN INDICATION
     Route: 048
  8. ALPRAZOLAM [Concomitant]
     Indication: DRUG USE FOR UNKNOWN INDICATION
     Route: 048
  9. TRIHEXYPHENIDYL HYDROCHLORIDE [Concomitant]
     Indication: DRUG USE FOR UNKNOWN INDICATION
     Route: 048
  10. LEVOMEPROMAZINE [Concomitant]
     Indication: DRUG USE FOR UNKNOWN INDICATION
     Route: 048
  11. TRIAZOLAM [Concomitant]
     Indication: DRUG USE FOR UNKNOWN INDICATION
     Route: 048
  12. DISTIGMINE BROMIDE [Concomitant]
     Indication: DRUG USE FOR UNKNOWN INDICATION
     Route: 048
  13. SENNOSIDE [Concomitant]
     Indication: DRUG USE FOR UNKNOWN INDICATION
     Route: 048

REACTIONS (1)
  - RHABDOMYOLYSIS [None]
